FAERS Safety Report 17288212 (Version 2)
Quarter: 2021Q4

REPORT INFORMATION
  Report Type: Report from Study
  Country: SE (occurrence: SE)
  Receive Date: 20200120
  Receipt Date: 20211104
  Transmission Date: 20220303
  Serious: Yes (Other)
  Sender: FDA-Public Use
  Company Number: SE-002147023-NVSC2019SE016939

PATIENT
  Sex: Female

DRUGS (3)
  1. ERENUMAB [Suspect]
     Active Substance: ERENUMAB
     Indication: Migraine
     Dosage: 70 MILLIGRAM, QMO
     Route: 058
     Dates: start: 20190417
  2. METOPROLOL [Concomitant]
     Active Substance: METOPROLOL
     Indication: Product used for unknown indication
     Dosage: 50 UNK
     Route: 048
     Dates: start: 2009
  3. CANDESARTAN [Concomitant]
     Active Substance: CANDESARTAN
     Indication: Product used for unknown indication
     Dosage: 16 UNK
     Route: 048
     Dates: start: 2009

REACTIONS (6)
  - Rectal haemorrhage [Unknown]
  - Abdominal distension [Unknown]
  - Dyschezia [Unknown]
  - Gastrointestinal motility disorder [Unknown]
  - Faeces hard [Unknown]
  - Constipation [Recovered/Resolved]

NARRATIVE: CASE EVENT DATE: 20190601
